FAERS Safety Report 9808734 (Version 5)
Quarter: 2014Q1

REPORT INFORMATION
  Report Type: Report from Study
  Country: US (occurrence: US)
  Receive Date: 20140110
  Receipt Date: 20140128
  Transmission Date: 20141002
  Serious: Yes (Life-Threatening, Hospitalization)
  Sender: FDA-Public Use
  Company Number: US-009507513-1401USA002480

PATIENT
  Age: 43 Year
  Sex: Male
  Weight: 58.7 kg

DRUGS (3)
  1. VORINOSTAT [Suspect]
     Indication: HAEMATOPOIETIC NEOPLASM
     Dosage: 500MG 3X/DAY ON DAY 1-3
     Route: 048
     Dates: start: 20131216
  2. CYTARABINE [Suspect]
     Indication: HAEMATOPOIETIC NEOPLASM
     Dosage: 150 MG/M2, QD CONTNUOUS IV INFUSION ON DAYS 4-7
     Route: 042
     Dates: start: 20131219, end: 20131222
  3. IDARUBICIN [Suspect]
     Indication: HAEMATOPOIETIC NEOPLASM
     Dosage: 12 MG/M2, QD OVER 15 MINUTES ON DAYS 4-6
     Route: 042
     Dates: start: 20131219, end: 20131221

REACTIONS (6)
  - Colitis [Recovering/Resolving]
  - Sepsis [Recovering/Resolving]
  - Pericardial effusion [Recovered/Resolved]
  - Blood bilirubin increased [Recovering/Resolving]
  - Diarrhoea [Recovering/Resolving]
  - Febrile neutropenia [Recovering/Resolving]
